FAERS Safety Report 14704014 (Version 1)
Quarter: 2018Q2

REPORT INFORMATION
  Report Type: Spontaneous
  Country: US (occurrence: US)
  Receive Date: 20180402
  Receipt Date: 20180402
  Transmission Date: 20180711
  Serious: No
  Sender: FDA-Public Use
  Company Number: US-BAYER-2018-060002

PATIENT
  Age: 68 Year
  Sex: Female
  Weight: 109 kg

DRUGS (2)
  1. MIRALAX [Suspect]
     Active Substance: POLYETHYLENE GLYCOL 3350
     Indication: GASTROINTESTINAL DISORDER
     Dosage: 45 DAY DOSE BOTTLE 26.9OZ
     Route: 048
  2. MORPHINE [Concomitant]
     Active Substance: MORPHINE
     Dosage: UNK

REACTIONS (2)
  - Product use issue [Unknown]
  - Product quality issue [None]

NARRATIVE: CASE EVENT DATE: 2010
